FAERS Safety Report 15748662 (Version 1)
Quarter: 2018Q4

REPORT INFORMATION
  Report Type: Spontaneous
  Country: US (occurrence: US)
  Receive Date: 20181221
  Receipt Date: 20181221
  Transmission Date: 20190205
  Serious: No
  Sender: FDA-Public Use
  Company Number: US-RECKITT BENCKISER HEALTHCARE INT LIMITED-RB-81942-2018

PATIENT
  Age: 71 Year
  Sex: Female

DRUGS (1)
  1. DELSYM [Suspect]
     Active Substance: DEXTROMETHORPHAN
     Indication: COUGH
     Dosage: TOOK 1/4 OF THE BOTTLE, 3 MOUTHFULS THROUGHOUT THE COURSE OF ONE DAY
     Route: 048
     Dates: start: 20171229

REACTIONS (3)
  - Overdose [Unknown]
  - Feeling drunk [Unknown]
  - Dizziness [Unknown]

NARRATIVE: CASE EVENT DATE: 20171229
